FAERS Safety Report 7660090-X (Version None)
Quarter: 2011Q3

REPORT INFORMATION
  Report Type: 
  Country: None (occurrence: None)
  Receive Date: 20110805
  Receipt Date: 20110722
  Transmission Date: 20111222
  Serious: Yes (Hospitalization)
  Sender: FDA-Public Use
  Company Number: PHHY2011DE14662

PATIENT
  Sex: Female
  Weight: 2.9 kg

DRUGS (2)
  1. AMLOCLAIR [Concomitant]
     Indication: HYPERTENSION
     Dosage: 5 MG, UNK
     Route: 064
     Dates: start: 20100301, end: 20100528
  2. RASILEZ [Suspect]
     Indication: HYPERTENSION
     Dosage: 150 MG, DAILY
     Route: 064
     Dates: start: 20080101, end: 20100528

REACTIONS (2)
  - FOETAL HEART RATE ABNORMAL [None]
  - MATERNAL EXPOSURE DURING PREGNANCY [None]
